FAERS Safety Report 10290357 (Version 1)
Quarter: 2014Q3

REPORT INFORMATION
  Report Type: Spontaneous
  Country: US (occurrence: None)
  Receive Date: 20140707
  Receipt Date: 20140707
  Transmission Date: 20150326
  Serious: Yes (Other)
  Sender: FDA-Public Use
  Company Number: None

PATIENT
  Age: 21 Year
  Sex: Female
  Weight: 70.31 kg

DRUGS (1)
  1. NEXPLANON [Suspect]
     Active Substance: ETONOGESTREL
     Indication: CONTRACEPTION
     Dosage: IMPLANT ?ONCE DAILY?UNDER THE SKIN??THERAPY MAY 2016
     Route: 023

REACTIONS (4)
  - Dysmenorrhoea [None]
  - Asthenia [None]
  - Menorrhagia [None]
  - Feeling abnormal [None]

NARRATIVE: CASE EVENT DATE: 20140704
